FAERS Safety Report 8808558 (Version 1)
Quarter: 2012Q4

REPORT INFORMATION
  Report Type: 
  Country: BR (occurrence: BR)
  Receive Date: 20120926
  Receipt Date: 20120926
  Transmission Date: 20130627
  Serious: Yes (Other)
  Sender: FDA-Public Use
  Company Number: PHHY2012BR081267

PATIENT
  Age: 79 Year
  Sex: Female
  Weight: 65 kg

DRUGS (6)
  1. GALVUS MET [Suspect]
     Dosage: 1 DF, (500 mg metf/ 50 mg vild) BID (1 tab after breaskfast and dinner)
  2. DIOVAN AMLO FIX [Suspect]
     Indication: HYPERTENSION
  3. METFORMIN [Concomitant]
     Indication: TYPE 2 DIABETES MELLITUS
     Dosage: 3 DF, daily
  4. CRESTOR [Concomitant]
     Dosage: 1 DF, daily at night
  5. ACETYLSALICYLIC ACID [Concomitant]
     Dosage: 1 DF, daily
  6. SIMVASTATIN [Concomitant]

REACTIONS (5)
  - Mesenteric occlusion [Recovering/Resolving]
  - Carotid artery occlusion [Recovering/Resolving]
  - Body mass index increased [Recovering/Resolving]
  - Glycosylated haemoglobin increased [Recovering/Resolving]
  - Blood glucose increased [Recovering/Resolving]
